FAERS Safety Report 4323251-3 (Version None)
Quarter: 2004Q1

REPORT INFORMATION
  Report Type: 
  Country: None (occurrence: None)
  Receive Date: 20040322
  Receipt Date: 20040303
  Transmission Date: 20041129
  Serious: Yes (Other)
  Sender: FDA-Public Use
  Company Number: 430001K04FRA

PATIENT
  Sex: 0

DRUGS (1)
  1. NOVANTRONE [Suspect]
     Dosage: INTRAVENOUS
     Route: 042

REACTIONS (2)
  - ANURIA [None]
  - PAIN [None]
